FAERS Safety Report 7780918-2 (Version None)
Quarter: 2011Q3

REPORT INFORMATION
  Report Type: 
  Country: None (occurrence: None)
  Receive Date: 20110923
  Receipt Date: 20110912
  Transmission Date: 20111222
  Serious: Yes (Death, Life-Threatening, Hospitalization)
  Sender: FDA-Public Use
  Company Number: TPA2011A03146

PATIENT
  Age: 69 Year
  Sex: Male

DRUGS (2)
  1. ADENURIC (FEBUXOSTAT) [Suspect]
     Indication: HYPERURICAEMIA
     Dosage: 80 MG (80 MG, 1 IN 1 D)
     Route: 048
     Dates: start: 20110427, end: 20110512
  2. PHENPROCOUMON (PHENPROCOUMON) [Concomitant]

REACTIONS (2)
  - DISEASE COMPLICATION [None]
  - RENAL FAILURE [None]
